FAERS Safety Report 6954310-4 (Version None)
Quarter: 2010Q3

REPORT INFORMATION
  Report Type: 
  Country: None (occurrence: None)
  Receive Date: 20100829
  Receipt Date: 20100713
  Transmission Date: 20110219
  Serious: No
  Sender: FDA-Public Use
  Company Number: US-ABBOTT-10P-163-0656849-00

PATIENT
  Sex: Female
  Weight: 72.64 kg

DRUGS (5)
  1. NIASPAN [Suspect]
     Indication: HYPERLIPIDAEMIA
     Dosage: AT BED TIME
     Dates: start: 20060101, end: 20060101
  2. SYNTHROID [Concomitant]
     Indication: PRODUCT USED FOR UNKNOWN INDICATION
  3. LISINOPRIL [Concomitant]
     Indication: PRODUCT USED FOR UNKNOWN INDICATION
  4. MULTI-VITAMIN [Concomitant]
     Indication: PRODUCT USED FOR UNKNOWN INDICATION
  5. CALCIUM [Concomitant]
     Indication: PRODUCT USED FOR UNKNOWN INDICATION

REACTIONS (1)
  - FLUSHING [None]
